FAERS Safety Report 13491574 (Version 1)
Quarter: 2017Q2

REPORT INFORMATION
  Report Type: Spontaneous
  Country: FR (occurrence: FR)
  Receive Date: 20170427
  Receipt Date: 20170427
  Transmission Date: 20170830
  Serious: Yes (Hospitalization, Other)
  Sender: FDA-Public Use
  Company Number: FR-PFIZER INC-2017177811

PATIENT
  Age: 68 Year
  Sex: Female

DRUGS (4)
  1. ZAVEDOS [Suspect]
     Active Substance: IDARUBICIN
     Indication: ACUTE MYELOID LEUKAEMIA
     Dosage: 14.4 MG, 1X/DAY
     Dates: start: 20170309, end: 20170313
  2. GRANOCYTE [Concomitant]
     Active Substance: LENOGRASTIM
     Dosage: UNK
     Dates: start: 20170309, end: 20170315
  3. CYTARABINE SANDOZ [Suspect]
     Active Substance: CYTARABINE
     Indication: ACUTE MYELOID LEUKAEMIA
     Dosage: 97 MG, 1X/DAY
     Dates: start: 20170309, end: 20170315
  4. BELUSTINE [Suspect]
     Active Substance: LOMUSTINE
     Dosage: UNK
     Dates: start: 20170309, end: 20170309

REACTIONS (1)
  - Cardiac failure congestive [Recovering/Resolving]

NARRATIVE: CASE EVENT DATE: 20170404
